FAERS Safety Report 4507921-X (Version None)
Quarter: 2004Q4

REPORT INFORMATION
  Report Type: 
  Country: None (occurrence: None)
  Receive Date: 20041123
  Receipt Date: 20041111
  Transmission Date: 20050328
  Serious: Yes (Hospitalization)
  Sender: FDA-Public Use
  Company Number: US-MERCK-0411USA02173

PATIENT
  Age: 76 Year
  Sex: Female

DRUGS (2)
  1. VIOXX [Suspect]
     Route: 048
     Dates: start: 20040201, end: 20040922
  2. LOTREL [Concomitant]
     Route: 065

REACTIONS (3)
  - LUNG DISORDER [None]
  - PAIN [None]
  - SWELLING [None]
